FAERS Safety Report 4730675-9 (Version None)
Quarter: 2005Q3

REPORT INFORMATION
  Report Type: 
  Country: None (occurrence: None)
  Receive Date: 20050725
  Receipt Date: 20050225
  Transmission Date: 20060218
  Serious: No
  Sender: FDA-Public Use
  Company Number: USA050392027

PATIENT
  Age: 40 Year
  Sex: Male
  Weight: 73 kg

DRUGS (1)
  1. STRATTERA [Suspect]
     Indication: ATTENTION DEFICIT/HYPERACTIVITY DISORDER
     Dosage: 80 MG/  DAY

REACTIONS (3)
  - ANXIETY [None]
  - PANIC ATTACK [None]
  - TACHYCARDIA [None]
